FAERS Safety Report 9504306 (Version 2)
Quarter: 2013Q3

REPORT INFORMATION
  Report Type: Report from Study
  Country: IT (occurrence: IT)
  Receive Date: 20130906
  Receipt Date: 20130911
  Transmission Date: 20140515
  Serious: Yes (Death)
  Sender: FDA-Public Use
  Company Number: IT-ROCHE-1270739

PATIENT
  Age: 67 Year
  Sex: Male
  Weight: 72 kg

DRUGS (6)
  1. BEVACIZUMAB [Suspect]
     Indication: COLON CANCER
     Dosage: LAST DOSE PRIOR TO SAE: 23/AUG/2013
     Route: 042
     Dates: start: 20130808
  2. OXALIPLATIN [Suspect]
     Indication: COLON CANCER
     Dosage: LAST DOSE PRIOR TO SAE: 23/AUG/2013
     Route: 042
     Dates: start: 20130808
  3. FOLINIC ACID [Suspect]
     Indication: COLON CANCER
     Dosage: LAST DOSE PRIOR TO SAE: 23/AUG/2013
     Route: 042
     Dates: start: 20130808
  4. 5-FLUOROURACIL [Suspect]
     Indication: COLON CANCER
     Dosage: LAST DOSE PRIOR TO SAE: 23/AUG/2013
     Route: 042
     Dates: start: 20130808
  5. PLAUNAZIDE [Concomitant]
     Route: 065
     Dates: start: 2008
  6. ZYLORIC [Concomitant]
     Route: 065
     Dates: start: 2005

REACTIONS (1)
  - Cardiac arrest [Fatal]
